FAERS Safety Report 19798628 (Version 1)
Quarter: 2021Q3

REPORT INFORMATION
  Report Type: Spontaneous
  Country: CN (occurrence: CN)
  Receive Date: 20210906
  Receipt Date: 20210906
  Transmission Date: 20211014
  Serious: Yes (Other)
  Sender: FDA-Public Use
  Company Number: CN-009507513-2109CHN000314

PATIENT
  Age: 87 Year
  Sex: Female
  Weight: 40 kg

DRUGS (2)
  1. TIENAM [Suspect]
     Active Substance: CILASTATIN SODIUM\IMIPENEM
     Indication: PNEUMONIA
     Dosage: 1 G, TID
     Route: 041
     Dates: start: 20210817, end: 20210823
  2. SODIUM CHLORIDE. [Concomitant]
     Active Substance: SODIUM CHLORIDE
     Dosage: 100 ML, Q8H
     Route: 041
     Dates: start: 20210817, end: 20210823

REACTIONS (2)
  - Depressed level of consciousness [Recovering/Resolving]
  - Seizure [Recovering/Resolving]

NARRATIVE: CASE EVENT DATE: 20210820
